FAERS Safety Report 11278824 (Version 2)
Quarter: 2015Q3

REPORT INFORMATION
  Report Type: Spontaneous
  Country: DE (occurrence: DE)
  Receive Date: 20150717
  Receipt Date: 20150828
  Transmission Date: 20151125
  Serious: Yes (Other)
  Sender: FDA-Public Use
  Company Number: DE-JNJFOC-20150710201

PATIENT
  Sex: Male
  Weight: 84 kg

DRUGS (3)
  1. RAMIPRIL. [Concomitant]
     Active Substance: RAMIPRIL
     Indication: HYPERTENSION
     Dosage: TAKEN AS NEEDED
     Route: 048
  2. DICLAC [Concomitant]
     Active Substance: DICLOFENAC POTASSIUM
     Indication: ANKYLOSING SPONDYLITIS
     Dosage: TAKEN AS NEEDED
     Route: 048
  3. SIMPONI [Suspect]
     Active Substance: GOLIMUMAB
     Indication: ANKYLOSING SPONDYLITIS
     Route: 058
     Dates: start: 20100303, end: 20150709

REACTIONS (1)
  - Malignant melanoma [Unknown]

NARRATIVE: CASE EVENT DATE: 2013
